FAERS Safety Report 8092602-9 (Version None)
Quarter: 2012Q1

REPORT INFORMATION
  Report Type: 
  Country: None (occurrence: None)
  Receive Date: 20120128
  Receipt Date: 20110722
  Transmission Date: 20120608
  Serious: No
  Sender: FDA-Public Use
  Company Number: US-ABBOTT-11P-163-0841387-00

PATIENT
  Age: 60 Year
  Sex: Female

DRUGS (12)
  1. LORAZEPAM [Concomitant]
     Dosage: 0.5 MG PRN UP TO 4 TIMES A DAY
  2. SELEGILINE [Concomitant]
     Indication: DEPRESSION
     Dosage: 10 MG DAILY
  3. LAMICTAL [Concomitant]
     Indication: DEPRESSION
     Dosage: 200 MG DAILY AT BEDTIME
  4. PREMARIN [Concomitant]
     Indication: HORMONE REPLACEMENT THERAPY
     Dosage: 0.3 MG DAILY
  5. PRAVACHOL [Concomitant]
     Indication: BLOOD CHOLESTEROL INCREASED
     Dosage: 20 MG DAILY
  6. SEROQUEL [Concomitant]
     Indication: ANXIETY
     Dosage: 100 MG DAILY
  7. HUMIRA [Suspect]
     Indication: PSORIASIS
     Dates: start: 20110713
  8. TOPAMAX [Concomitant]
     Indication: DEPRESSION
  9. LORAZEPAM [Concomitant]
     Indication: ANXIETY
     Dosage: 0.5 MG PRN UP TO 4 TIMES A DAY
  10. NORVASC [Concomitant]
     Indication: HYPERTENSION
     Dosage: 10 MG DAILY AT BEDTIME
  11. LORAZEPAM [Concomitant]
     Dosage: UP TO 4 TIMES A DAY
  12. LORAZEPAM [Concomitant]
     Dosage: 2 MG DAILY

REACTIONS (3)
  - INJECTION SITE ERYTHEMA [None]
  - INJECTION SITE PAPULE [None]
  - INJECTION SITE REACTION [None]
